FAERS Safety Report 15881757 (Version 1)
Quarter: 2019Q1

REPORT INFORMATION
  Report Type: Spontaneous
  Country: US (occurrence: US)
  Receive Date: 20190128
  Receipt Date: 20190128
  Transmission Date: 20190417
  Serious: No
  Sender: FDA-Public Use
  Company Number: US-SA-2019SA020939

PATIENT
  Sex: Female

DRUGS (1)
  1. DUPIXENT [Suspect]
     Active Substance: DUPILUMAB
     Indication: DERMATITIS ATOPIC
     Dosage: 300 MG, QOW
     Route: 058
     Dates: start: 20181024

REACTIONS (4)
  - Injection site irritation [Recovering/Resolving]
  - Throat irritation [Recovering/Resolving]
  - Injection site pustule [Recovering/Resolving]
  - Blister infected [Recovering/Resolving]
